FAERS Safety Report 4500231-6 (Version None)
Quarter: 2004Q4

REPORT INFORMATION
  Report Type: 
  Country: None (occurrence: None)
  Receive Date: 20041105
  Receipt Date: 20041025
  Transmission Date: 20050328
  Serious: Yes (Other)
  Sender: FDA-Public Use
  Company Number: 200410347BBE

PATIENT
  Age: 80 Year
  Sex: Female

DRUGS (8)
  1. GAMUNEX [Suspect]
     Indication: CHRONIC INFLAMMATORY DEMYELINATING POLYRADICULONEUROPATHY
     Dosage: 400 MG/KG, QD, INTRAVENOUS
     Route: 042
  2. HYDROCONE [Concomitant]
  3. PROTANGNIX [Concomitant]
  4. AVAPRO [Concomitant]
  5. WELLBUTRIN [Concomitant]
  6. TRAZODONE HCL [Concomitant]
  7. AMBIEN [Concomitant]
  8. MEDROL [Concomitant]

REACTIONS (4)
  - MYOCARDIAL INFARCTION [None]
  - NAUSEA [None]
  - PHARMACEUTICAL PRODUCT COMPLAINT [None]
  - VOMITING [None]
